FAERS Safety Report 20081552 (Version 1)
Quarter: 2021Q4

REPORT INFORMATION
  Report Type: Spontaneous
  Country: US (occurrence: None)
  Receive Date: 20211117
  Receipt Date: 20211117
  Transmission Date: 20220303
  Serious: Yes (Death, Hospitalization)
  Sender: FDA-Public Use
  Company Number: None

PATIENT
  Age: 16 Year
  Sex: Male
  Weight: 77.9 kg

DRUGS (5)
  1. DAUNORUBICIN [Suspect]
     Active Substance: DAUNORUBICIN
     Dates: end: 20211103
  2. ASPARAGINASE [Suspect]
     Active Substance: ASPARAGINASE
     Dates: end: 20211019
  3. PREDNISOLONE [Suspect]
     Active Substance: PREDNISOLONE
     Dates: end: 20211106
  4. VINCRISTINE SULFATE [Suspect]
     Active Substance: VINCRISTINE SULFATE
     Dates: end: 20211103
  5. CYTARABINE [Suspect]
     Active Substance: CYTARABINE
     Dates: end: 20211014

REACTIONS (5)
  - Pleuritic pain [None]
  - Hepatic infection [None]
  - Pain [None]
  - Mucormycosis [None]
  - Infective pericardial effusion [None]

NARRATIVE: CASE EVENT DATE: 20211101
